FAERS Safety Report 7555194-6 (Version None)
Quarter: 2011Q2

REPORT INFORMATION
  Report Type: 
  Country: None (occurrence: None)
  Receive Date: 20110617
  Receipt Date: 20110608
  Transmission Date: 20111010
  Serious: Yes (Death, Hospitalization)
  Sender: FDA-Public Use
  Company Number: PHHY2011HU45303

PATIENT

DRUGS (1)
  1. LETROZOLE [Suspect]
     Dosage: 2.5 MG, DAILY

REACTIONS (1)
  - CARDIOVASCULAR DISORDER [None]
